FAERS Safety Report 7537127-1 (Version None)
Quarter: 2011Q2

REPORT INFORMATION
  Report Type: 
  Country: None (occurrence: None)
  Receive Date: 20110609
  Receipt Date: 20110601
  Transmission Date: 20111010
  Serious: Yes (Hospitalization)
  Sender: FDA-Public Use
  Company Number: PHHO2011US09515

PATIENT
  Sex: Male
  Weight: 140 kg

DRUGS (2)
  1. AFINITOR [Suspect]
     Indication: METASTATIC RENAL CELL CARCINOMA
     Dosage: 10 MG, UNK
     Route: 048
     Dates: start: 20100422, end: 20110524
  2. KEFLEX [Concomitant]
     Indication: LOCALISED INFECTION

REACTIONS (3)
  - VENTRICULAR DYSFUNCTION [None]
  - HERPES ZOSTER [None]
  - DYSPNOEA [None]
